FAERS Safety Report 14304682 (Version 1)
Quarter: 2017Q4

REPORT INFORMATION
  Report Type: Spontaneous
  Country: JP (occurrence: JP)
  Receive Date: 20171219
  Receipt Date: 20171219
  Transmission Date: 20180321
  Serious: Yes (Other)
  Sender: FDA-Public Use
  Company Number: JP-OTSUKA-001384

PATIENT
  Age: 52 Year
  Sex: Female

DRUGS (11)
  1. AKINETON [Concomitant]
     Active Substance: BIPERIDEN HYDROCHLORIDE
     Dosage: 3 MG, QD
     Route: 065
  2. RISPERDAL [Concomitant]
     Active Substance: RISPERIDONE
     Dosage: 9 MG, QD
     Route: 048
     Dates: end: 20080212
  3. LEVOMEPROMAZINE [Concomitant]
     Active Substance: LEVOMEPROMAZINE
  4. HIRNAMIN [Concomitant]
     Active Substance: PHENOTHIAZINE
     Dosage: 30 MG, QD
     Route: 065
     Dates: start: 20080213
  5. ABILIFY [Suspect]
     Active Substance: ARIPIPRAZOLE
     Indication: SCHIZOPHRENIA
     Dosage: 12 MG, QD
     Route: 048
     Dates: start: 20080206, end: 20080212
  6. ABILIFY [Suspect]
     Active Substance: ARIPIPRAZOLE
     Dosage: 16 MG, QD
     Route: 048
     Dates: start: 20080213, end: 20080513
  7. ABILIFY [Suspect]
     Active Substance: ARIPIPRAZOLE
     Dosage: 14 MG, QD
     Route: 048
     Dates: start: 20080514, end: 20080612
  8. HIRNAMIN [Concomitant]
     Active Substance: PHENOTHIAZINE
     Dosage: 40 MG, QD
     Route: 065
     Dates: end: 20080212
  9. SERENACE [Concomitant]
     Active Substance: HALOPERIDOL
     Dosage: 6 MG, QD
     Route: 065
  10. FERROMIA [Concomitant]
     Active Substance: SODIUM FERROUS CITRATE
     Indication: ANAEMIA
     Dosage: 50 MG, QD
     Route: 048
  11. LULLAN [Concomitant]
     Active Substance: PEROSPIRONE HYDROCHLORIDE
     Dosage: 24 MG, QD
     Route: 048
     Dates: end: 20080212

REACTIONS (1)
  - Hepatic function abnormal [Recovered/Resolved]

NARRATIVE: CASE EVENT DATE: 20080611
